FAERS Safety Report 14826098 (Version 1)
Quarter: 2018Q2

REPORT INFORMATION
  Report Type: Spontaneous
  Country: US (occurrence: US)
  Receive Date: 20180430
  Receipt Date: 20180430
  Transmission Date: 20180711
  Serious: Yes (Other)
  Sender: FDA-Public Use
  Company Number: US-BAUSCH-BL-2018-011871

PATIENT
  Sex: Female

DRUGS (1)
  1. PRIMIDONE. [Suspect]
     Active Substance: PRIMIDONE
     Indication: SEIZURE
     Route: 048
     Dates: start: 2003

REACTIONS (2)
  - Feeling abnormal [Unknown]
  - Thrombosis [Unknown]

NARRATIVE: CASE EVENT DATE: 2017
